FAERS Safety Report 5171444-8 (Version None)
Quarter: 2006Q4

REPORT INFORMATION
  Report Type: 
  Country: None (occurrence: None)
  Receive Date: 20061206
  Receipt Date: 20061206
  Transmission Date: 20070319
  Serious: Yes (Other)
  Sender: FDA-Public Use
  Company Number: None

PATIENT
  Sex: Female
  Weight: 50.3493 kg

DRUGS (2)
  1. EFFEXOR XR [Suspect]
     Indication: ANXIETY
     Dosage: 37.5MG DAILY PO
     Route: 048
     Dates: start: 20061105, end: 20061107
  2. EFFEXOR XR [Suspect]
     Indication: DEPRESSION
     Dosage: 37.5MG DAILY PO
     Route: 048
     Dates: start: 20061105, end: 20061107

REACTIONS (2)
  - RASH [None]
  - URTICARIA [None]
